FAERS Safety Report 4663132-9 (Version None)
Quarter: 2005Q2

REPORT INFORMATION
  Report Type: 
  Country: None (occurrence: None)
  Receive Date: 20050510
  Receipt Date: 20041005
  Transmission Date: 20051028
  Serious: Yes (Hospitalization)
  Sender: FDA-Public Use
  Company Number: PHEH2004US10721

PATIENT
  Age: 23 Year
  Sex: Female

DRUGS (2)
  1. TEGRETOL [Suspect]
     Indication: MUSCLE SPASMS
     Dosage: ORAL
     Route: 048
     Dates: start: 20021201, end: 20030101
  2. BETASERON [Suspect]
     Indication: MULTIPLE SCLEROSIS
     Dosage: 8 UCI, QOD, SUBCUTANEOUS
     Route: 058
     Dates: start: 20020712

REACTIONS (3)
  - MULTIPLE SCLEROSIS [None]
  - RASH PAPULAR [None]
  - STEVENS-JOHNSON SYNDROME [None]
